FAERS Safety Report 15930781 (Version 2)
Quarter: 2019Q1

REPORT INFORMATION
  Report Type: Report from Study
  Country: JP (occurrence: JP)
  Receive Date: 20190207
  Receipt Date: 20190319
  Transmission Date: 20190417
  Serious: Yes (Hospitalization)
  Sender: FDA-Public Use
  Company Number: JP-ROCHE-2256219

PATIENT
  Age: 47 Year
  Sex: Female

DRUGS (56)
  1. POLARAMINE [Concomitant]
     Active Substance: DEXCHLORPHENIRAMINE MALEATE
     Route: 048
     Dates: start: 20180611, end: 20180611
  2. CALONAL [Concomitant]
     Active Substance: ACETAMINOPHEN
     Route: 048
     Dates: start: 20180611, end: 20180611
  3. CICLOSPORIN [Concomitant]
     Active Substance: CYCLOSPORINE
     Route: 048
     Dates: start: 20180616, end: 20180616
  4. CICLOSPORIN [Concomitant]
     Active Substance: CYCLOSPORINE
     Route: 048
     Dates: start: 20180710, end: 20180710
  5. MYCOPHENOLATE MOFETIL. [Concomitant]
     Active Substance: MYCOPHENOLATE MOFETIL
     Indication: PROPHYLAXIS AGAINST TRANSPLANT REJECTION
     Route: 048
     Dates: start: 20180515, end: 20180611
  6. BASILIXIMAB [Concomitant]
     Active Substance: BASILIXIMAB
     Route: 042
     Dates: start: 20180612, end: 20180612
  7. PRECIPITATED CALCIUM CARBONATE [Concomitant]
     Active Substance: CALCIUM CARBONATE
     Route: 048
     Dates: start: 20180611
  8. CARDENALIN [Concomitant]
     Active Substance: DOXAZOSIN MESYLATE
     Indication: HYPERTENSION
     Route: 048
     Dates: start: 20180611
  9. RITUXAN [Suspect]
     Active Substance: RITUXIMAB
     Indication: PROPHYLAXIS AGAINST TRANSPLANT REJECTION
     Route: 041
     Dates: start: 20180529, end: 20180529
  10. CICLOSPORIN [Concomitant]
     Active Substance: CYCLOSPORINE
     Route: 048
     Dates: start: 20180619, end: 20180622
  11. CICLOSPORIN [Concomitant]
     Active Substance: CYCLOSPORINE
     Route: 048
     Dates: start: 20180626, end: 20180626
  12. CICLOSPORIN [Concomitant]
     Active Substance: CYCLOSPORINE
     Route: 048
     Dates: start: 20180713, end: 20180721
  13. MYCOPHENOLATE MOFETIL. [Concomitant]
     Active Substance: MYCOPHENOLATE MOFETIL
     Route: 048
     Dates: start: 20180612, end: 20180612
  14. REGPARA [Concomitant]
     Active Substance: CINACALCET HYDROCHLORIDE
     Indication: HYPERPARATHYROIDISM SECONDARY
     Route: 048
     Dates: start: 20180611
  15. ADALAT [Concomitant]
     Active Substance: NIFEDIPINE
     Indication: HYPERTENSION
     Route: 048
     Dates: start: 20180611
  16. AMLODIN [Concomitant]
     Active Substance: AMLODIPINE BESYLATE
     Indication: HYPERTENSION
     Route: 048
     Dates: start: 20180614, end: 20180621
  17. PREDONINE [Suspect]
     Active Substance: PREDNISOLONE
     Route: 048
     Dates: start: 20180624, end: 20180626
  18. PREDONINE [Suspect]
     Active Substance: PREDNISOLONE
     Route: 048
     Dates: start: 20180627, end: 20180629
  19. CICLOSPORIN [Concomitant]
     Active Substance: CYCLOSPORINE
     Route: 048
     Dates: start: 20180629, end: 20180709
  20. CICLOSPORIN [Concomitant]
     Active Substance: CYCLOSPORINE
     Route: 048
     Dates: start: 20180722, end: 20180724
  21. CICLOSPORIN [Concomitant]
     Active Substance: CYCLOSPORINE
     Route: 048
     Dates: start: 20180818, end: 20181130
  22. RIONA [Concomitant]
     Active Substance: FERRIC CITRATE ANHYDROUS
     Indication: HYPERPHOSPHATAEMIA
     Route: 048
     Dates: start: 20180611
  23. NEORAL [Suspect]
     Active Substance: CYCLOSPORINE
     Indication: PROPHYLAXIS AGAINST TRANSPLANT REJECTION
     Route: 048
     Dates: start: 20180610, end: 20181130
  24. PREDONINE [Suspect]
     Active Substance: PREDNISOLONE
     Route: 048
     Dates: start: 20180615, end: 20180617
  25. PREDONINE [Suspect]
     Active Substance: PREDNISOLONE
     Route: 048
     Dates: start: 20180618, end: 20180620
  26. BREDININ [Suspect]
     Active Substance: MIZORIBINE
     Indication: PROPHYLAXIS AGAINST TRANSPLANT REJECTION
     Route: 048
     Dates: start: 20180615
  27. CALONAL [Concomitant]
     Active Substance: ACETAMINOPHEN
     Indication: PREMEDICATION
     Route: 048
     Dates: start: 20180529, end: 20180529
  28. CICLOSPORIN [Concomitant]
     Active Substance: CYCLOSPORINE
     Route: 048
     Dates: start: 20180612, end: 20180612
  29. CICLOSPORIN [Concomitant]
     Active Substance: CYCLOSPORINE
     Route: 048
     Dates: start: 20180627, end: 20180628
  30. CICLOSPORIN [Concomitant]
     Active Substance: CYCLOSPORINE
     Route: 048
     Dates: start: 20180727, end: 20180817
  31. SOLU-MEDROL [Concomitant]
     Active Substance: METHYLPREDNISOLONE SODIUM SUCCINATE
     Route: 042
     Dates: start: 20180614, end: 20180614
  32. AVAPRO [Concomitant]
     Active Substance: IRBESARTAN
     Indication: HYPERTENSION
     Route: 048
     Dates: start: 20180824, end: 20180830
  33. RITUXAN [Suspect]
     Active Substance: RITUXIMAB
     Route: 041
     Dates: start: 20180611, end: 20180611
  34. CICLOSPORIN [Concomitant]
     Active Substance: CYCLOSPORINE
     Route: 048
     Dates: start: 20180623, end: 20180625
  35. SOLU-MEDROL [Concomitant]
     Active Substance: METHYLPREDNISOLONE SODIUM SUCCINATE
     Route: 042
     Dates: start: 20180613, end: 20180613
  36. PREDONINE [Suspect]
     Active Substance: PREDNISOLONE
     Route: 048
     Dates: start: 20180621, end: 20180623
  37. POLARAMINE [Concomitant]
     Active Substance: DEXCHLORPHENIRAMINE MALEATE
     Indication: PREMEDICATION
     Route: 048
     Dates: start: 20180529, end: 20180529
  38. CICLOSPORIN [Concomitant]
     Active Substance: CYCLOSPORINE
     Route: 042
     Dates: start: 20180614, end: 20180615
  39. CICLOSPORIN [Concomitant]
     Active Substance: CYCLOSPORINE
     Route: 048
     Dates: start: 20180617, end: 20180618
  40. SOLU-MEDROL [Concomitant]
     Active Substance: METHYLPREDNISOLONE SODIUM SUCCINATE
     Indication: PROPHYLAXIS AGAINST TRANSPLANT REJECTION
     Route: 042
     Dates: start: 20180612, end: 20180612
  41. MYCOPHENOLATE MOFETIL. [Concomitant]
     Active Substance: MYCOPHENOLATE MOFETIL
     Route: 048
     Dates: start: 20180613, end: 20180614
  42. CERTICAN [Concomitant]
     Active Substance: EVEROLIMUS
  43. LIPITOR [Concomitant]
     Active Substance: ATORVASTATIN CALCIUM
     Indication: HYPERLIPIDAEMIA
     Route: 048
     Dates: start: 20180611
  44. AMLODIN [Concomitant]
     Active Substance: AMLODIPINE BESYLATE
     Route: 048
     Dates: start: 20180706
  45. PREDONINE [Suspect]
     Active Substance: PREDNISOLONE
     Indication: PROPHYLAXIS AGAINST TRANSPLANT REJECTION
     Route: 048
     Dates: start: 20180515, end: 20180611
  46. CICLOSPORIN [Concomitant]
     Active Substance: CYCLOSPORINE
     Indication: PROPHYLAXIS AGAINST TRANSPLANT REJECTION
     Route: 042
     Dates: start: 20180613, end: 20180613
  47. CICLOSPORIN [Concomitant]
     Active Substance: CYCLOSPORINE
     Route: 048
     Dates: start: 20180610, end: 20180611
  48. BASILIXIMAB [Concomitant]
     Active Substance: BASILIXIMAB
     Route: 042
     Dates: start: 20180616, end: 20180616
  49. ARTIST [Concomitant]
     Active Substance: CARVEDILOL
     Indication: HYPERTENSION
     Route: 048
     Dates: start: 20180611
  50. AVAPRO [Concomitant]
     Active Substance: IRBESARTAN
     Route: 048
     Dates: start: 20180831
  51. PREDONINE [Suspect]
     Active Substance: PREDNISOLONE
     Route: 048
     Dates: start: 20180630
  52. CICLOSPORIN [Concomitant]
     Active Substance: CYCLOSPORINE
     Route: 048
     Dates: start: 20180711, end: 20180712
  53. CICLOSPORIN [Concomitant]
     Active Substance: CYCLOSPORINE
     Route: 048
     Dates: start: 20180725, end: 20180726
  54. BAKTAR [Concomitant]
     Active Substance: SULFAMETHOXAZOLE\TRIMETHOPRIM
     Route: 048
     Dates: start: 20180515
  55. RANITIDINE. [Concomitant]
     Active Substance: RANITIDINE
     Indication: GASTRIC ULCER
     Route: 048
     Dates: start: 20180515
  56. DIOVAN [Concomitant]
     Active Substance: VALSARTAN
     Indication: HYPERTENSION
     Route: 048
     Dates: start: 20180611

REACTIONS (2)
  - Kidney transplant rejection [Recovered/Resolved]
  - Renal cyst infection [Recovering/Resolving]

NARRATIVE: CASE EVENT DATE: 20180720
